FAERS Safety Report 18902441 (Version 4)
Quarter: 2022Q1

REPORT INFORMATION
  Report Type: Spontaneous
  Country: ES (occurrence: ES)
  Receive Date: 20210217
  Receipt Date: 20220219
  Transmission Date: 20220423
  Serious: Yes (Other)
  Sender: FDA-Public Use
  Company Number: ES-MYLANLABS-2012SP002831

PATIENT
  Age: 31 Year
  Sex: Female

DRUGS (15)
  1. METRONIDAZOLE [Interacting]
     Active Substance: METRONIDAZOLE
     Indication: Eczema
     Dosage: 250 MILLIGRAM, TWO TIMES A DAY
     Route: 065
  2. OLANZAPINE [Suspect]
     Active Substance: OLANZAPINE
     Indication: Product used for unknown indication
     Dosage: 20 MILLIGRAM, ONCE A DAY
     Route: 065
  3. OLANZAPINE [Suspect]
     Active Substance: OLANZAPINE
     Dosage: UNK
     Route: 065
  4. QUETIAPINE [Interacting]
     Active Substance: QUETIAPINE
     Indication: Bipolar disorder
     Dosage: 25 MILLIGRAM, ONCE A DAY
     Route: 065
  5. QUETIAPINE [Interacting]
     Active Substance: QUETIAPINE
     Indication: Behaviour disorder
     Dosage: 100 MILLIGRAM, ONCE A DAY
     Route: 065
     Dates: start: 20110905
  6. QUETIAPINE [Interacting]
     Active Substance: QUETIAPINE
     Dosage: 300 MILLIGRAM, ONCE A DAY
     Route: 065
     Dates: start: 20110921
  7. QUETIAPINE [Interacting]
     Active Substance: QUETIAPINE
     Dosage: 100 MILLIGRAM, DAILY
     Route: 065
  8. HALOPERIDOL [Suspect]
     Active Substance: HALOPERIDOL
     Indication: Product used for unknown indication
     Dosage: UNK
     Route: 065
  9. AMOXICILLIN\CLAVULANIC ACID [Concomitant]
     Active Substance: AMOXICILLIN\CLAVULANIC ACID
     Indication: Urinary tract infection
     Dosage: UNK
     Route: 065
  10. CLONAZEPAM [Concomitant]
     Active Substance: CLONAZEPAM
     Indication: Behaviour disorder
     Dosage: 0.5 MILLIGRAM, ONCE A DAY
     Route: 065
  11. DIAZEPAM [Concomitant]
     Active Substance: DIAZEPAM
     Indication: Behaviour disorder
     Dosage: 10 MILLIGRAM, ONCE A DAY
     Route: 065
  12. IBUPROFEN [Concomitant]
     Active Substance: IBUPROFEN
     Indication: Inflammation
     Dosage: 600 MILLIGRAM, 3 TIMES A DAY
     Route: 048
  13. OMEPRAZOLE [Concomitant]
     Active Substance: OMEPRAZOLE
     Indication: Product used for unknown indication
     Dosage: 20 MILLIGRAM, ONCE A DAY
     Route: 065
  14. ACETAMINOPHEN [Concomitant]
     Active Substance: ACETAMINOPHEN
     Indication: Inflammation
     Dosage: 1 GRAM, 3 TIMES A DAY
     Route: 048
  15. SERTRALINE [Concomitant]
     Active Substance: SERTRALINE HYDROCHLORIDE
     Indication: Behaviour disorder
     Dosage: 25 MILLIGRAM, ONCE A DAY
     Route: 065

REACTIONS (4)
  - Parkinsonism [Recovered/Resolved]
  - Extrapyramidal disorder [Recovered/Resolved]
  - Sedation [Unknown]
  - Drug interaction [Recovered/Resolved]

NARRATIVE: CASE EVENT DATE: 20110101
